FAERS Safety Report 4973352-1 (Version None)
Quarter: 2006Q2

REPORT INFORMATION
  Report Type: 
  Country: None (occurrence: None)
  Receive Date: 20060414
  Receipt Date: 20051220
  Transmission Date: 20061013
  Serious: Yes (Hospitalization)
  Sender: FDA-Public Use
  Company Number: US-BOEHRINGER INGELHEIM PHARMACEUTICALS, INC.-2005-BP-21625BP

PATIENT
  Sex: Female
  Weight: 96.4 kg

DRUGS (16)
  1. ATROVENT [Suspect]
     Indication: ASTHMA
     Route: 055
     Dates: start: 19900101, end: 20050901
  2. IPRATROPIUM BROMIDE [Suspect]
     Indication: ASTHMA
     Route: 055
  3. ALBUTEROL [Suspect]
     Indication: ASTHMA
     Route: 055
     Dates: start: 19900101
  4. ALBUTEROL [Suspect]
     Route: 055
  5. XOPENEX [Suspect]
     Indication: ASTHMA
     Route: 065
     Dates: start: 19900101
  6. THEO-DUR [Suspect]
     Route: 065
  7. PREDNISONE TAB [Concomitant]
     Indication: ASTHMA
     Route: 065
  8. SINGULAIR [Concomitant]
     Indication: ASTHMA
     Dates: start: 20030101
  9. TILADE [Concomitant]
     Indication: ASTHMA
     Dates: start: 20050101
  10. ADVAIR DISKUS 100/50 [Concomitant]
     Indication: ASTHMA
     Dates: start: 20040101
  11. MIRAPEX [Concomitant]
     Indication: RESTLESS LEGS SYNDROME
     Dates: start: 20030101
  12. ATROVENT [Concomitant]
     Indication: ASTHMA
     Route: 055
  13. ULTRAM [Concomitant]
  14. NEURONTIN [Concomitant]
  15. ASTELIN [Concomitant]
     Route: 045
  16. ACCOLATE [Concomitant]

REACTIONS (9)
  - CHEST PAIN [None]
  - DRUG INTERACTION [None]
  - DYSPNOEA [None]
  - ELECTROCARDIOGRAM ST SEGMENT ELEVATION [None]
  - HEPATIC ENZYME INCREASED [None]
  - LABORATORY TEST ABNORMAL [None]
  - LIVER FUNCTION TEST ABNORMAL [None]
  - MYOCARDIAL INFARCTION [None]
  - SINUS BRADYCARDIA [None]
